FAERS Safety Report 4642668-0 (Version None)
Quarter: 2005Q2

REPORT INFORMATION
  Report Type: 
  Country: None (occurrence: None)
  Receive Date: 20050422
  Receipt Date: 20050412
  Transmission Date: 20051028
  Serious: Yes (Death, Hospitalization)
  Sender: FDA-Public Use
  Company Number: US-MERCK-0504USA01875

PATIENT
  Age: 33 Year
  Sex: Male

DRUGS (4)
  1. CANCIDAS [Suspect]
     Indication: FUNGAL INFECTION
     Route: 042
  2. CANCIDAS [Suspect]
     Indication: CANDIDIASIS
     Route: 042
  3. FLUCONAZOLE [Concomitant]
     Route: 065
  4. VANCOMYCIN [Concomitant]
     Route: 065

REACTIONS (3)
  - CANDIDA SEPSIS [None]
  - FUNGAEMIA [None]
  - MULTI-ORGAN FAILURE [None]
